FAERS Safety Report 8927257 (Version 4)
Quarter: 2013Q4

REPORT INFORMATION
  Report Type: Report from Study
  Country: DE (occurrence: DE)
  Receive Date: 20121127
  Receipt Date: 20131115
  Transmission Date: 20140711
  Serious: Yes (Death)
  Sender: FDA-Public Use
  Company Number: DE-BAXTER-2012BAX023766

PATIENT
  Age: 39 Year
  Sex: 0
  Weight: 82 kg

DRUGS (6)
  1. ADVATE 500 I.E. [Suspect]
     Indication: FACTOR VIII DEFICIENCY
     Route: 042
     Dates: start: 20060720
  2. ADVATE 500 I.E. [Suspect]
     Indication: PROPHYLAXIS
  3. ARCOXIA [Concomitant]
     Indication: PAIN
     Route: 048
     Dates: start: 20070523
  4. TRAMAL [Concomitant]
     Indication: PAIN
     Dates: start: 20120605, end: 201208
  5. AMITRIPTYLIN [Concomitant]
     Indication: PAIN
     Route: 048
     Dates: start: 20120605, end: 201208
  6. FENTANYL [Concomitant]
     Indication: PAIN
     Route: 062
     Dates: start: 201208

REACTIONS (1)
  - Death [Fatal]
